FAERS Safety Report 16440901 (Version 1)
Quarter: 2019Q2

REPORT INFORMATION
  Report Type: Spontaneous
  Country: PL (occurrence: PL)
  Receive Date: 20190617
  Receipt Date: 20190617
  Transmission Date: 20190711
  Serious: Yes (Life-Threatening, Hospitalization, Other)
  Sender: FDA-Public Use
  Company Number: PL-PFIZER INC-2019256584

PATIENT
  Age: 41 Year
  Sex: Female

DRUGS (10)
  1. CYCLOPHOSPHAMIDE. [Suspect]
     Active Substance: CYCLOPHOSPHAMIDE
     Indication: SYSTEMIC LUPUS ERYTHEMATOSUS
  2. CHLOROQUINE. [Concomitant]
     Active Substance: CHLOROQUINE
     Indication: THROMBOCYTOPENIA
     Dosage: UNK
  3. DEXAMETHASONE. [Suspect]
     Active Substance: DEXAMETHASONE
     Indication: THROMBOCYTOPENIA
     Dosage: 2 MG, 1X/DAY
     Route: 048
  4. METHYLPREDNISOLONE. [Suspect]
     Active Substance: METHYLPREDNISOLONE
     Indication: THROMBOCYTOPENIA
     Dosage: 1000 MG, UNK (PULSE THERAPY METHYLPREDNISOLONE 5 X 1000 MG IV)
     Route: 042
  5. METHYLPREDNISOLONE. [Suspect]
     Active Substance: METHYLPREDNISOLONE
     Indication: SYSTEMIC LUPUS ERYTHEMATOSUS
  6. CHLOROQUINE. [Concomitant]
     Active Substance: CHLOROQUINE
     Indication: SYSTEMIC LUPUS ERYTHEMATOSUS
  7. IMMUNOGLOBULINS NOS [Suspect]
     Active Substance: IMMUNE GLOBULIN NOS
     Indication: SYSTEMIC LUPUS ERYTHEMATOSUS
  8. IMMUNOGLOBULINS NOS [Suspect]
     Active Substance: IMMUNE GLOBULIN NOS
     Indication: THROMBOCYTOPENIA
     Dosage: UNK, 3 G/KG
  9. DEXAMETHASONE. [Suspect]
     Active Substance: DEXAMETHASONE
     Indication: SYSTEMIC LUPUS ERYTHEMATOSUS
  10. CYCLOPHOSPHAMIDE. [Suspect]
     Active Substance: CYCLOPHOSPHAMIDE
     Indication: THROMBOCYTOPENIA
     Dosage: 400 MG, CYCLIC (EVERY 2 WEEKS FOR A TOTAL OF 6 CYCLES)
     Route: 042

REACTIONS (2)
  - Perinephric abscess [Recovering/Resolving]
  - Thrombocytopenia [Recovering/Resolving]
